FAERS Safety Report 8142476-2 (Version None)
Quarter: 2012Q1

REPORT INFORMATION
  Report Type: 
  Country: None (occurrence: None)
  Receive Date: 20120216
  Receipt Date: 20120210
  Transmission Date: 20120608
  Serious: No
  Sender: FDA-Public Use
  Company Number: US-BAYER-2012-015669

PATIENT
  Sex: Female

DRUGS (2)
  1. ALEVE (CAPLET) [Suspect]
     Indication: PAIN
     Dosage: 2 DF, UNK
  2. VICODIN [Concomitant]
     Indication: PAIN

REACTIONS (4)
  - PAIN [None]
  - RENAL PAIN [None]
  - DEPRESSION [None]
  - MUSCLE SPASMS [None]
